FAERS Safety Report 8182832-X (Version None)
Quarter: 2012Q1

REPORT INFORMATION
  Report Type: 
  Country: None (occurrence: None)
  Receive Date: 20120226
  Receipt Date: 20111006
  Transmission Date: 20120608
  Serious: Yes (Hospitalization)
  Sender: FDA-Public Use
  Company Number: PHEH2011US06282

PATIENT
  Age: 69 Year
  Sex: Male

DRUGS (2)
  1. AFINITOR [Suspect]
     Indication: RENAL CANCER
     Dosage: 10 MG, DAILY, ORAL
     Route: 048
     Dates: start: 20110817, end: 20110928
  2. AFINITOR [Suspect]
     Indication: MALIGNANT URINARY TRACT NEOPLASM
     Dosage: 10 MG, DAILY, ORAL
     Route: 048
     Dates: start: 20110817, end: 20110928

REACTIONS (2)
  - FEAR [None]
  - PNEUMONIA [None]
